FAERS Safety Report 13867216 (Version 1)
Quarter: 2017Q3

REPORT INFORMATION
  Report Type: Spontaneous
  Country: US (occurrence: None)
  Receive Date: 20170814
  Receipt Date: 20170814
  Transmission Date: 20171127
  Serious: No
  Sender: FDA-Public Use
  Company Number: None

PATIENT
  Age: 59 Year
  Sex: Male

DRUGS (1)
  1. EXJADE [Suspect]
     Active Substance: DEFERASIROX
     Indication: PRODUCT USED FOR UNKNOWN INDICATION
     Route: 048
     Dates: start: 20161101

REACTIONS (5)
  - Polyuria [None]
  - Renal disorder [None]
  - Chromaturia [None]
  - Thirst [None]
  - Enuresis [None]

NARRATIVE: CASE EVENT DATE: 20170809
